FAERS Safety Report 25515366 (Version 2)
Quarter: 2025Q3

REPORT INFORMATION
  Report Type: Spontaneous
  Country: AU (occurrence: AU)
  Receive Date: 20250704
  Receipt Date: 20250715
  Transmission Date: 20251020
  Serious: Yes (Hospitalization)
  Sender: OXFORD PHARMACEUTICALS, LLC
  Company Number: AU-Oxford Pharmaceuticals, LLC-2179917

PATIENT
  Sex: Female

DRUGS (1)
  1. GLYCOPYRROLATE [Suspect]
     Active Substance: GLYCOPYRROLATE
     Indication: Bradycardia

REACTIONS (2)
  - Stress cardiomyopathy [Recovered/Resolved]
  - Maternal exposure during pregnancy [Unknown]
